FAERS Safety Report 13467346 (Version 1)
Quarter: 2017Q2

REPORT INFORMATION
  Report Type: Spontaneous
  Country: US (occurrence: US)
  Receive Date: 20170421
  Receipt Date: 20170421
  Transmission Date: 20170830
  Serious: Yes (Disabling)
  Sender: FDA-Public Use
  Company Number: None

PATIENT
  Sex: Female

DRUGS (1)
  1. LAMICTAL [Suspect]
     Active Substance: LAMOTRIGINE

REACTIONS (4)
  - Drug dose omission [None]
  - Paraesthesia [None]
  - Therapy change [None]
  - Headache [None]

NARRATIVE: CASE EVENT DATE: 20170421
